FAERS Safety Report 12218654 (Version 1)
Quarter: 2016Q1

REPORT INFORMATION
  Report Type: Spontaneous
  Country: RU (occurrence: RU)
  Receive Date: 20160329
  Receipt Date: 20160329
  Transmission Date: 20160526
  Serious: Yes (Other)
  Sender: FDA-Public Use
  Company Number: RU-BAYER-2016-054524

PATIENT
  Age: 37 Year
  Sex: Female

DRUGS (1)
  1. QLAIRA [Suspect]
     Active Substance: DIENOGEST\ESTRADIOL VALERATE
     Dosage: UNK
     Route: 048
     Dates: start: 2015, end: 201602

REACTIONS (4)
  - Nervous system disorder [None]
  - Infertility [None]
  - Eye pain [None]
  - Pain in extremity [None]
